FAERS Safety Report 18149505 (Version 1)
Quarter: 2020Q3

REPORT INFORMATION
  Report Type: Spontaneous
  Country: US (occurrence: US)
  Receive Date: 20200814
  Receipt Date: 20200814
  Transmission Date: 20201103
  Serious: Yes (Hospitalization, Other)
  Sender: FDA-Public Use
  Company Number: US-GLAXOSMITHKLINE-US2020GSK155505

PATIENT
  Sex: Female
  Weight: 77.1 kg

DRUGS (1)
  1. BENLYSTA [Suspect]
     Active Substance: BELIMUMAB
     Indication: SYSTEMIC LUPUS ERYTHEMATOSUS
     Dosage: 10 MG/KG, CYC
     Route: 042
     Dates: start: 20100111

REACTIONS (8)
  - Pyrexia [Unknown]
  - Chills [Unknown]
  - Micturition urgency [Unknown]
  - Dysuria [Unknown]
  - Interstitial lung disease [Recovered/Resolved]
  - Myalgia [Unknown]
  - Headache [Unknown]
  - Dyspnoea [Unknown]

NARRATIVE: CASE EVENT DATE: 20150413
